FAERS Safety Report 6057883 (Version 35)
Quarter: 2014Q2

REPORT INFORMATION
  Report Type: Spontaneous
  Country: US (occurrence: US)
  Receive Date: 20060605
  Receipt Date: 20140428
  Transmission Date: 20141212
  Serious: Yes (Death, Hospitalization, Other)
  Sender: FDA-Public Use
  Company Number: PHEH2006US06792

PATIENT
  Age: 81 Year
  Sex: Female
  Weight: 65.31 kg

DRUGS (70)
  1. AREDIA [Suspect]
     Indication: METASTASES TO BONE
     Dosage: 90 MG, QMO
     Route: 042
     Dates: start: 20001003, end: 20020219
  2. ZOMETA [Suspect]
     Indication: METASTASES TO BONE
     Dosage: 4 MG, QMO
     Route: 041
     Dates: start: 20020319, end: 200312
  3. ZOMETA [Suspect]
     Indication: BREAST CANCER METASTATIC
  4. TAMOXIFEN [Concomitant]
     Indication: BREAST CANCER
     Dosage: 10 MG, BID
     Route: 048
     Dates: start: 19981031, end: 20030501
  5. ATIVAN [Concomitant]
     Indication: ANXIETY
     Dosage: 1 MG, BID
     Route: 048
     Dates: start: 20000928
  6. VIOXX [Concomitant]
     Indication: BONE PAIN
     Dosage: 25 MG, QD
     Dates: start: 20010220, end: 20040908
  7. FOSAMAX [Concomitant]
     Dosage: 10 MG, QW
     Dates: start: 20020122, end: 20040219
  8. ARIMIDEX [Concomitant]
     Dosage: 1 MG, QD
     Dates: start: 20031001
  9. CALCIUM [Concomitant]
     Dosage: 400 MG, QID
     Dates: start: 20000929, end: 20030121
  10. GLUCOSAMINE W/CHONDROITIN [Concomitant]
     Dates: start: 20020122, end: 20030121
  11. NEXIUM [Concomitant]
     Indication: GASTROOESOPHAGEAL REFLUX DISEASE
     Dates: start: 20021029, end: 20040908
  12. REGLAN [Concomitant]
     Indication: GASTROOESOPHAGEAL REFLUX DISEASE
     Dosage: 10 MG
     Route: 048
  13. DARVOCET-N [Concomitant]
  14. PHENERGAN ^AVENTIS PHARMA^ [Concomitant]
  15. AROMASIN [Concomitant]
  16. ATARAX                                  /CAN/ [Concomitant]
  17. BACTRIM [Concomitant]
  18. BETAMETHASONE VALERATE [Concomitant]
  19. CELEBREX [Concomitant]
  20. CYPROHEPTADINE HYDROCHLORIDE [Concomitant]
  21. HYDROCODONE W/ACETAMINOPHEN [Concomitant]
  22. PERCOCET [Concomitant]
  23. PROCHLORPERAZINE [Concomitant]
  24. PROMETHAZINE HYDROCHLORIDE [Concomitant]
  25. VESICARE [Concomitant]
  26. ZYRTEC [Concomitant]
  27. LOVENOX [Concomitant]
  28. CALCITONIN [Concomitant]
  29. TORADOL [Concomitant]
  30. METOCLOPRAMID [Concomitant]
  31. LORAZEPAM [Concomitant]
  32. NOLVADEX ^ASTRAZENECA^ [Concomitant]
  33. FAMVIR                                  /NET/ [Concomitant]
  34. ELIDEL [Concomitant]
  35. MOBIC [Concomitant]
  36. PENICILLIN VK [Concomitant]
  37. CHLORHEXIDINE GLUCONATE [Concomitant]
  38. CYCLOBENZAPRINE [Concomitant]
  39. HYDROXYZINE [Concomitant]
  40. SPORANOX [Concomitant]
  41. LIDOCAINE VISCOUS [Concomitant]
  42. PAXIL [Concomitant]
  43. ALPRAZOLAM [Concomitant]
  44. OXYCODONE [Concomitant]
  45. METHADONE [Concomitant]
  46. AVELOX [Concomitant]
  47. GEMCITABINE [Concomitant]
  48. VITAMIN D [Concomitant]
  49. CODEINE [Concomitant]
  50. DEMEROL [Concomitant]
  51. ACEON [Concomitant]
  52. AMBIEN [Concomitant]
  53. DESYREL [Concomitant]
  54. ELAVIL [Concomitant]
  55. KLONOPIN [Concomitant]
  56. LODINE [Concomitant]
  57. MEDROL [Concomitant]
  58. NAPROSYN [Concomitant]
  59. NEURONTIN [Concomitant]
  60. PAMELOR [Concomitant]
  61. RELAFEN [Concomitant]
  62. ROBAXIN [Concomitant]
  63. SKELAXIN [Concomitant]
  64. SOMA [Concomitant]
  65. TEGRETOL [Concomitant]
  66. ULTRAM [Concomitant]
  67. FLEXERIL [Concomitant]
  68. ZOLOFT (SERTRALINE HYDROCHLORIDE) [Concomitant]
  69. PREDNISONE [Concomitant]
  70. OMEPRAZOLE [Concomitant]

REACTIONS (102)
  - Death [Fatal]
  - Chronic obstructive pulmonary disease [Unknown]
  - Asthenia [Unknown]
  - Bile duct stone [Unknown]
  - Oedema peripheral [Unknown]
  - Osteonecrosis of jaw [Recovering/Resolving]
  - Pain [Unknown]
  - Deformity [Unknown]
  - Oral discomfort [Unknown]
  - Emotional distress [Unknown]
  - Anxiety [Unknown]
  - Anhedonia [Unknown]
  - Osteomyelitis [Unknown]
  - Pain in jaw [Unknown]
  - Oral cavity fistula [Unknown]
  - Tooth fracture [Unknown]
  - Toothache [Unknown]
  - Dental caries [Unknown]
  - Tooth infection [Unknown]
  - Inflammation [Unknown]
  - Abscess jaw [Unknown]
  - Bone disorder [Unknown]
  - Impaired healing [Unknown]
  - Purulent discharge [Unknown]
  - Primary sequestrum [Unknown]
  - Tooth disorder [Unknown]
  - Tooth deposit [Unknown]
  - Papilloma [Unknown]
  - Actinomycosis [Unknown]
  - Hyperplasia [Unknown]
  - Procedural pain [Unknown]
  - Face oedema [Unknown]
  - Tooth loss [Recovering/Resolving]
  - Weight decreased [Recovering/Resolving]
  - Dysgeusia [Recovering/Resolving]
  - Hypoaesthesia [Unknown]
  - Gingival swelling [Unknown]
  - Gingivitis [Unknown]
  - Lacunar infarction [Unknown]
  - Cervical spinal stenosis [Unknown]
  - Kyphosis [Unknown]
  - Intervertebral disc protrusion [Unknown]
  - Neoplasm progression [Unknown]
  - Malignant neoplasm progression [Unknown]
  - Metastases to spine [Unknown]
  - Metastases to bone [Unknown]
  - Aortic calcification [Unknown]
  - Cholecystitis [Unknown]
  - Diverticulum intestinal [Unknown]
  - Pleural effusion [Unknown]
  - Pathological fracture [Unknown]
  - Spinal compression fracture [Unknown]
  - Diaphragmatic hernia [Unknown]
  - Atelectasis [Unknown]
  - Malignant pleural effusion [Unknown]
  - Urinary tract infection [Unknown]
  - Herpes zoster [Unknown]
  - Tachycardia [Unknown]
  - Decubitus ulcer [Unknown]
  - Nephropathy [Unknown]
  - Basal cell carcinoma [Unknown]
  - Skin cancer [Unknown]
  - Colon cancer [Unknown]
  - Renal failure [Unknown]
  - Haematuria [Unknown]
  - Hypertonic bladder [Unknown]
  - Gait disturbance [Unknown]
  - Rash [Unknown]
  - Urticaria [Unknown]
  - Dermatitis [Unknown]
  - Bone pain [Unknown]
  - Back pain [Unknown]
  - Pain in extremity [Unknown]
  - Osteoarthritis [Unknown]
  - Spinal osteoarthritis [Unknown]
  - Dysphagia [Unknown]
  - Aspiration [Unknown]
  - Myofascial pain syndrome [Unknown]
  - Dyspnoea [Unknown]
  - Anaemia [Unknown]
  - Hypokalaemia [Recovered/Resolved]
  - Coma [Unknown]
  - Speech disorder [Unknown]
  - Cognitive disorder [Unknown]
  - Mouth ulceration [Unknown]
  - Oral disorder [Unknown]
  - Rheumatic fever [Unknown]
  - Rheumatic heart disease [Unknown]
  - Stomatitis [Unknown]
  - Oral candidiasis [Unknown]
  - Confusional state [Unknown]
  - Lethargy [Unknown]
  - Cough [Unknown]
  - Cholelithiasis [Unknown]
  - Renal cyst [Unknown]
  - Lymphadenopathy [Unknown]
  - Erythema [Unknown]
  - Skin lesion [Unknown]
  - Chest pain [Unknown]
  - Rash pruritic [Unknown]
  - Skin exfoliation [Unknown]
  - Decreased appetite [Unknown]
